FAERS Safety Report 5835989-7 (Version None)
Quarter: 2008Q3

REPORT INFORMATION
  Report Type: 
  Country: None (occurrence: None)
  Receive Date: 20080806
  Receipt Date: 20080801
  Transmission Date: 20090109
  Serious: Yes (Life-Threatening, Hospitalization)
  Sender: FDA-Public Use
  Company Number: US-GILEAD-2008-0017255

PATIENT
  Age: 48 Year
  Sex: Male
  Weight: 52.21 kg

DRUGS (6)
  1. TRUVADA [Suspect]
     Indication: HIV INFECTION
     Route: 048
     Dates: start: 20080311
  2. SUSTIVA [Suspect]
     Indication: HIV INFECTION
     Route: 048
     Dates: start: 20061130
  3. EPZICOM [Suspect]
     Indication: HIV INFECTION
     Route: 048
     Dates: start: 20061130, end: 20080311
  4. HYDROCHLOROTHIAZIDE [Concomitant]
     Indication: HYPERTENSION
  5. LISINOPRIL [Concomitant]
     Indication: HYPERTENSION
  6. NEURONTIN [Concomitant]
     Indication: HERPES ZOSTER

REACTIONS (6)
  - DEPRESSION [None]
  - HYPERTENSION [None]
  - MOOD ALTERED [None]
  - NIGHTMARE [None]
  - PAIN [None]
  - SUICIDE ATTEMPT [None]
